FAERS Safety Report 11530387 (Version 1)
Quarter: 2015Q3

REPORT INFORMATION
  Report Type: Spontaneous
  Country: US (occurrence: US)
  Receive Date: 20150903
  Receipt Date: 20150903
  Transmission Date: 20151125
  Serious: No
  Sender: FDA-Public Use
  Company Number: US-ELI_LILLY_AND_COMPANY-US200903006074

PATIENT
  Age: 67 Year
  Sex: Female

DRUGS (10)
  1. ALBUTEROL. [Concomitant]
     Active Substance: ALBUTEROL
     Indication: ASTHMA
     Dosage: UNK, AS NEEDED
  2. ADVAIR HFA [Concomitant]
     Active Substance: FLUTICASONE PROPIONATE\SALMETEROL XINAFOATE
     Indication: ASTHMA
  3. LANTUS [Concomitant]
     Active Substance: INSULIN GLARGINE
     Dosage: 35 U, DAILY (1/D)
     Dates: start: 2007
  4. LISINOPRIL. [Concomitant]
     Active Substance: LISINOPRIL
     Dosage: 5 MG, EACH MORNING
  5. ACTONEL [Concomitant]
     Active Substance: RISEDRONATE SODIUM
     Dosage: 25 MG, WEEKLY (1/W)
     Dates: start: 2007
  6. ALPRAZOLAM. [Concomitant]
     Active Substance: ALPRAZOLAM
     Indication: INSOMNIA
     Dosage: 1 MG, AS NEEDED
  7. HUMALOG [Suspect]
     Active Substance: INSULIN LISPRO
     Dosage: 14 U, 3/D
  8. HYDROCHLOROTHIAZIDE. [Concomitant]
     Active Substance: HYDROCHLOROTHIAZIDE
     Dosage: 25 MG, EACH MORNING
  9. HUMALOG [Suspect]
     Active Substance: INSULIN LISPRO
     Dosage: 10 U, WEEKLY (1/W)
  10. LANTUS [Concomitant]
     Active Substance: INSULIN GLARGINE
     Dosage: 25 U, DAILY (1/D)
     Dates: start: 20090323

REACTIONS (8)
  - Pneumonia [Recovering/Resolving]
  - Palpitations [Recovering/Resolving]
  - Blood glucose increased [Recovering/Resolving]
  - Blood potassium decreased [Recovered/Resolved]
  - Blood glucose increased [Recovering/Resolving]
  - Lung disorder [Unknown]
  - Pneumonia [Recovering/Resolving]
  - Pneumonia [Recovering/Resolving]

NARRATIVE: CASE EVENT DATE: 20080819
